FAERS Safety Report 5049121-3 (Version None)
Quarter: 2006Q3

REPORT INFORMATION
  Report Type: 
  Country: None (occurrence: None)
  Receive Date: 20060706
  Receipt Date: 20060614
  Transmission Date: 20061208
  Serious: Yes (Other)
  Sender: FDA-Public Use
  Company Number: 2005168377

PATIENT
  Sex: Female

DRUGS (3)
  1. LIPITOR [Suspect]
     Indication: ILL-DEFINED DISORDER
     Dosage: 10 MG (1 IN 1 D), ORAL
     Route: 048
  2. ZOLPIDEM TARTRATE [Concomitant]
  3. DEPAS (ETIZOLAM) [Concomitant]

REACTIONS (3)
  - BACK PAIN [None]
  - CHROMATURIA [None]
  - MUSCLE FATIGUE [None]
